FAERS Safety Report 6743758-9 (Version None)
Quarter: 2010Q2

REPORT INFORMATION
  Report Type: 
  Country: None (occurrence: None)
  Receive Date: 20100525
  Receipt Date: 20100505
  Transmission Date: 20101027
  Serious: Yes (Other)
  Sender: FDA-Public Use
  Company Number: JPI-P-010451

PATIENT
  Age: 39 Year
  Sex: Male

DRUGS (3)
  1. XYREM [Suspect]
     Indication: CATAPLEXY
     Dosage: 4.5 GM (2.25 GM, 2 IN 1 D), ORAL
     Route: 048
     Dates: start: 20100101
  2. XYREM [Suspect]
     Indication: DYSSOMNIA
     Dosage: 4.5 GM (2.25 GM, 2 IN 1 D), ORAL
     Route: 048
     Dates: start: 20100101
  3. MODAFINIL [Concomitant]

REACTIONS (4)
  - BRONCHITIS [None]
  - DECREASED APPETITE [None]
  - THROMBOCYTOPENIA [None]
  - TONSILLITIS [None]
